FAERS Safety Report 17527775 (Version 2)
Quarter: 2020Q3

REPORT INFORMATION
  Report Type: Spontaneous
  Country: US (occurrence: US)
  Receive Date: 20200311
  Receipt Date: 20200827
  Transmission Date: 20201102
  Serious: No
  Sender: FDA-Public Use
  Company Number: US-VERTEX PHARMACEUTICALS-2020-004886

PATIENT
  Age: 16 Year
  Sex: Female

DRUGS (3)
  1. TRIKAFTA [Suspect]
     Active Substance: ELEXACAFTOR\IVACAFTOR\TEZACAFTOR
     Indication: CYSTIC FIBROSIS
     Dosage: 2 TABS (100MG ELEXACAFTOR/50MG TEZACAFTOR/75MG IVACAFTOR) AM AND 1 TAB (150MG IVACAFTOR) PM
     Route: 048
     Dates: start: 202001
  2. SERTRALINE [Concomitant]
     Active Substance: SERTRALINE HYDROCHLORIDE
  3. BUDESONIDE. [Concomitant]
     Active Substance: BUDESONIDE

REACTIONS (1)
  - Fatigue [Not Recovered/Not Resolved]

NARRATIVE: CASE EVENT DATE: 20200319
